FAERS Safety Report 4579528-X (Version None)
Quarter: 2005Q1

REPORT INFORMATION
  Report Type: 
  Country: None (occurrence: None)
  Receive Date: 20050210
  Receipt Date: 20050128
  Transmission Date: 20050727
  Serious: Yes (Hospitalization, Other)
  Sender: FDA-Public Use
  Company Number: 2005S1000057

PATIENT
  Age: 47 Year
  Sex: Female
  Weight: 58.9676 kg

DRUGS (3)
  1. TEMAZEPAM [Suspect]
     Indication: INSOMNIA
     Dosage: 15 MG-30 MG PRN, ORAL
     Route: 048
     Dates: end: 20041201
  2. PERCOCET [Suspect]
     Indication: INSOMNIA
     Dates: end: 20041201
  3. PROMETHAZINE [Concomitant]

REACTIONS (5)
  - DIZZINESS [None]
  - ERYTHEMA [None]
  - HYPERSENSITIVITY [None]
  - RASH ERYTHEMATOUS [None]
  - SUNBURN [None]
